FAERS Safety Report 16863846 (Version 1)
Quarter: 2019Q3

REPORT INFORMATION
  Report Type: Spontaneous
  Country: DE (occurrence: DE)
  Receive Date: 20190927
  Receipt Date: 20190927
  Transmission Date: 20191005
  Serious: Yes (Congenital Anomaly)
  Sender: FDA-Public Use
  Company Number: PHHY2019DE222663

PATIENT
  Sex: Male
  Weight: 3.78 kg

DRUGS (9)
  1. QUETIAPINE. [Suspect]
     Active Substance: QUETIAPINE
     Indication: FOETAL EXPOSURE DURING PREGNANCY
     Dosage: MATERNAL DOSE: 50 MG, QD
     Route: 064
     Dates: start: 20180512, end: 20190222
  2. FOLSAEURE [Concomitant]
     Active Substance: FOLIC ACID
     Indication: FOETAL EXPOSURE DURING PREGNANCY
     Dosage: UNK
     Route: 064
  3. VAXIGRIP [Concomitant]
     Active Substance: INFLUENZA VIRUS VACCINE
     Indication: FOETAL EXPOSURE DURING PREGNANCY
     Dosage: 2 TRIMESTER
     Route: 064
  4. KETANEST [Concomitant]
     Indication: FOETAL EXPOSURE DURING PREGNANCY
     Dosage: ONCE AROUND CONCEPTION OR THE WEEK BEFORE CONCEPTION
     Route: 064
  5. PROPOFOL. [Concomitant]
     Active Substance: PROPOFOL
     Indication: FOETAL EXPOSURE DURING PREGNANCY
     Dosage: ONCE AROUND CONCEPTION OR THE WEEK BEFORE CONCEPTION
     Route: 064
  6. HYDROMORPHONE [Suspect]
     Active Substance: HYDROMORPHONE
     Indication: FOETAL EXPOSURE DURING PREGNANCY
     Dosage: MATERNAL DOSE: 20 [MG/D (BIS 2) ], 1 TRIMESTER
     Route: 064
  7. VENLAFAXINE [Suspect]
     Active Substance: VENLAFAXINE HYDROCHLORIDE
     Indication: FOETAL EXPOSURE DURING PREGNANCY
     Dosage: MATERNAL DOSE: 75 MG, QD
     Route: 064
     Dates: start: 20180512, end: 20190222
  8. DUORESP SPIROMAX [Concomitant]
     Active Substance: BUDESONIDE\FORMOTEROL
     Indication: FOETAL EXPOSURE DURING PREGNANCY
     Dosage: 4.5 [?G/D (9-0-9) ] / 160 [?G/D (320-0-320) ]
     Route: 064
  9. SPIRIVA [Concomitant]
     Active Substance: TIOTROPIUM BROMIDE MONOHYDRATE
     Indication: FOETAL EXPOSURE DURING PREGNANCY
     Dosage: 2.5 [?G/D (BEI BEDARF) ]/ IF REQUIRED
     Route: 064

REACTIONS (4)
  - Congenital megaureter [Unknown]
  - Congenital hydronephrosis [Unknown]
  - Kidney duplex [Unknown]
  - Foetal exposure during pregnancy [Unknown]
